FAERS Safety Report 25320461 (Version 1)
Quarter: 2025Q2

REPORT INFORMATION
  Report Type: Spontaneous
  Country: US (occurrence: US)
  Receive Date: 20250515
  Receipt Date: 20250515
  Transmission Date: 20250717
  Serious: Yes (Hospitalization)
  Sender: ELI LILLY AND COMPANY
  Company Number: US-ELI_LILLY_AND_COMPANY-US202505006886

PATIENT
  Age: 61 Year

DRUGS (16)
  1. MOUNJARO [Suspect]
     Active Substance: TIRZEPATIDE
     Indication: Product used for unknown indication
     Route: 065
     Dates: start: 202501
  2. MOUNJARO [Suspect]
     Active Substance: TIRZEPATIDE
     Indication: Product used for unknown indication
     Route: 065
     Dates: start: 202501
  3. MOUNJARO [Suspect]
     Active Substance: TIRZEPATIDE
     Indication: Product used for unknown indication
     Route: 065
     Dates: start: 202501
  4. MOUNJARO [Suspect]
     Active Substance: TIRZEPATIDE
     Indication: Product used for unknown indication
     Route: 065
     Dates: start: 202501
  5. MOUNJARO [Suspect]
     Active Substance: TIRZEPATIDE
     Route: 065
     Dates: start: 202502
  6. MOUNJARO [Suspect]
     Active Substance: TIRZEPATIDE
     Route: 065
     Dates: start: 202502
  7. MOUNJARO [Suspect]
     Active Substance: TIRZEPATIDE
     Route: 065
     Dates: start: 202502
  8. MOUNJARO [Suspect]
     Active Substance: TIRZEPATIDE
     Route: 065
     Dates: start: 202502
  9. MOUNJARO [Suspect]
     Active Substance: TIRZEPATIDE
     Route: 065
     Dates: start: 202503
  10. MOUNJARO [Suspect]
     Active Substance: TIRZEPATIDE
     Route: 065
     Dates: start: 202503
  11. MOUNJARO [Suspect]
     Active Substance: TIRZEPATIDE
     Route: 065
     Dates: start: 202503
  12. MOUNJARO [Suspect]
     Active Substance: TIRZEPATIDE
     Route: 065
     Dates: start: 202503
  13. JARDIANCE [Concomitant]
     Active Substance: EMPAGLIFLOZIN
     Indication: Product used for unknown indication
     Route: 065
  14. ROSUVASTATIN [Concomitant]
     Active Substance: ROSUVASTATIN
     Indication: Product used for unknown indication
     Route: 065
  15. METOPROLOL [Concomitant]
     Active Substance: METOPROLOL
     Indication: Product used for unknown indication
     Route: 065
  16. METFORMIN [Concomitant]
     Active Substance: METFORMIN HYDROCHLORIDE
     Indication: Product used for unknown indication
     Route: 065

REACTIONS (1)
  - Transient ischaemic attack [Unknown]

NARRATIVE: CASE EVENT DATE: 20250301
